FAERS Safety Report 5066770-7 (Version None)
Quarter: 2006Q3

REPORT INFORMATION
  Report Type: 
  Country: None (occurrence: None)
  Receive Date: 20060801
  Receipt Date: 20060720
  Transmission Date: 20061208
  Serious: Yes (Hospitalization)
  Sender: FDA-Public Use
  Company Number: CH-ROCHE-456422

PATIENT
  Age: 92 Year
  Sex: Female
  Weight: 61 kg

DRUGS (9)
  1. TORSEMIDE [Suspect]
     Indication: DRUG USE FOR UNKNOWN INDICATION
     Route: 048
     Dates: end: 20050821
  2. TORSEMIDE [Suspect]
     Route: 048
     Dates: start: 20050830
  3. CONCOR 10 [Suspect]
     Indication: DRUG USE FOR UNKNOWN INDICATION
     Route: 048
     Dates: end: 20050824
  4. CONCOR 10 [Suspect]
     Route: 048
     Dates: start: 20050825
  5. STILNOX [Suspect]
     Indication: DRUG USE FOR UNKNOWN INDICATION
     Route: 048
     Dates: end: 20050821
  6. SERESTA [Suspect]
     Indication: DRUG USE FOR UNKNOWN INDICATION
     Route: 048
  7. DANCOR [Concomitant]
     Route: 048
  8. COVERSUM [Concomitant]
     Route: 048
  9. FOLVITE [Concomitant]
     Route: 048

REACTIONS (3)
  - DEHYDRATION [None]
  - DIARRHOEA [None]
  - FALL [None]
